FAERS Safety Report 18898390 (Version 1)
Quarter: 2021Q1

REPORT INFORMATION
  Report Type: Spontaneous
  Country: GB (occurrence: GB)
  Receive Date: 20210216
  Receipt Date: 20210216
  Transmission Date: 20210420
  Serious: Yes (Disabling)
  Sender: FDA-Public Use
  Company Number: GB-ALKEM LABORATORIES LIMITED-GB-ALKEM-2020-08442

PATIENT
  Age: 88 Year

DRUGS (5)
  1. ATENOLOL. [Concomitant]
     Active Substance: ATENOLOL
     Indication: PRODUCT USED FOR UNKNOWN INDICATION
     Dosage: 25 MILLIGRAM, QD, (EVERY 1 DAY)
     Route: 048
  2. CO?DYDRAMOL [Suspect]
     Active Substance: ACETAMINOPHEN\DIHYDROCODEINE
     Indication: RHEUMATOID ARTHRITIS
     Dosage: 4 DOSAGE FORM, QD, (EVERY 1 DAY)
     Route: 048
     Dates: start: 20200101
  3. PREGABALIN. [Suspect]
     Active Substance: PREGABALIN
     Indication: NEURALGIA
     Dosage: 300 MILLIGRAM, QD, (EVERY 1 DAY)
     Route: 048
     Dates: start: 20201021, end: 20201021
  4. CLOPIDOGREL [Concomitant]
     Active Substance: CLOPIDOGREL BISULFATE
     Indication: PRODUCT USED FOR UNKNOWN INDICATION
     Dosage: 75 MILLIGRAM, QD, (EVERY 1 DAY)
     Route: 048
  5. LAXIDO [Concomitant]
     Active Substance: POLYETHYLENE GLYCOL 3350\POTASSIUM CHLORIDE\SODIUM BICARBONATE\SODIUM CHLORIDE
     Indication: PRODUCT USED FOR UNKNOWN INDICATION
     Dosage: 2 DOSAGE FORM, QD, (EVERY 1 DAY)
     Route: 048

REACTIONS (4)
  - Amnesia [Recovered/Resolved]
  - Somnolence [Recovered/Resolved]
  - Dizziness [Recovered/Resolved]
  - Confusional state [Recovered/Resolved]

NARRATIVE: CASE EVENT DATE: 20201021
